FAERS Safety Report 8444169-0 (Version None)
Quarter: 2012Q2

REPORT INFORMATION
  Report Type: 
  Country: None (occurrence: None)
  Receive Date: 20120618
  Receipt Date: 20120517
  Transmission Date: 20120825
  Serious: Yes (Life-Threatening, Hospitalization)
  Sender: FDA-Public Use
  Company Number: IL-NOVOPROD-350996

PATIENT
  Age: 67 Year
  Sex: Male
  Weight: 86 kg

DRUGS (1)
  1. VICTOZA [Suspect]
     Indication: TYPE 2 DIABETES MELLITUS
     Dosage: 1.8 MG, QD
     Route: 058
     Dates: start: 20101018, end: 20110530

REACTIONS (5)
  - CHOLANGITIS [None]
  - PORTAL VEIN THROMBOSIS [None]
  - SEPSIS [None]
  - ADENOCARCINOMA PANCREAS [None]
  - INTERNATIONAL NORMALISED RATIO INCREASED [None]
